FAERS Safety Report 9821269 (Version 2)
Quarter: 2014Q1

REPORT INFORMATION
  Report Type: Spontaneous
  Country: ES (occurrence: ES)
  Receive Date: 20140116
  Receipt Date: 20140116
  Transmission Date: 20141002
  Serious: Yes (Other)
  Sender: FDA-Public Use
  Company Number: ES-OTSUKA-EU-2013-10309

PATIENT
  Sex: 0

DRUGS (11)
  1. PLETAL [Suspect]
     Indication: INTERMITTENT CLAUDICATION
     Dosage: 100 MG MILLIGRAM(S), BID
     Route: 048
     Dates: end: 201207
  2. PLETAL [Suspect]
     Dosage: 100 MG MILLIGRAM(S), UNK
     Route: 048
     Dates: start: 201208
  3. CORLENTOR [Concomitant]
     Indication: ANGINA PECTORIS
     Dosage: UNK, UNKNOWN
     Route: 065
  4. EFIENT [Concomitant]
     Indication: MYOCARDIAL ISCHAEMIA
     Dosage: UNK, UNKNOWN
     Route: 065
  5. ADIRO [Concomitant]
     Indication: MYOCARDIAL ISCHAEMIA
     Dosage: UNK, UNKNOWN
     Route: 065
  6. LINAGLIPTIN [Concomitant]
     Indication: TYPE 2 DIABETES MELLITUS
     Dosage: UNK, UNKNOWN
     Route: 065
  7. CARDISER [Concomitant]
     Indication: MYOCARDIAL ISCHAEMIA
     Dosage: UNK UNK, UNKNOWN
     Route: 065
  8. ATORVASTATINA [Concomitant]
     Indication: MYOCARDIAL ISCHAEMIA
     Dosage: UNK, UNKNOWN
     Route: 065
  9. OMEPRAZOL RATIOPHARM [Concomitant]
     Dosage: UNK, UNKNOWN
     Route: 065
  10. TRYPTIZOL [Concomitant]
     Dosage: UNK, UNKNOWN
     Route: 065
  11. ENALAPRIL [Concomitant]

REACTIONS (10)
  - Syncope [Unknown]
  - Palpitations [Unknown]
  - Angina pectoris [Unknown]
  - Coronary artery disease [Unknown]
  - Peripheral arterial occlusive disease [Unknown]
  - Tachycardia [Unknown]
  - Normochromic normocytic anaemia [Unknown]
  - Contraindication to medical treatment [Unknown]
  - Flushing [Unknown]
  - Hyperhidrosis [Unknown]
